FAERS Safety Report 9582926 (Version 1)
Quarter: 2013Q4

REPORT INFORMATION
  Report Type: Spontaneous
  Country: US (occurrence: US)
  Receive Date: 20131002
  Receipt Date: 20131002
  Transmission Date: 20140711
  Serious: No
  Sender: FDA-Public Use
  Company Number: US-AMGEN-USASP2013043308

PATIENT
  Age: 46 Year
  Sex: Female
  Weight: 75.28 kg

DRUGS (4)
  1. ENBREL [Suspect]
     Indication: PRODUCT USED FOR UNKNOWN INDICATION
     Dosage: 50 MG, QWK
     Route: 058
  2. SULFASALAZIN [Concomitant]
     Dosage: 500 MG, UNK
  3. CELEBREX [Concomitant]
     Dosage: 100 MG, UNK
  4. DOXEPIN HCL [Concomitant]
     Dosage: 10 MG, UNK

REACTIONS (4)
  - Injection site mass [Unknown]
  - Injection site reaction [Unknown]
  - Injection site erythema [Unknown]
  - Injection site pain [Unknown]
